FAERS Safety Report 6857872-0 (Version None)
Quarter: 2010Q3

REPORT INFORMATION
  Report Type: 
  Country: None (occurrence: None)
  Receive Date: 20100719
  Receipt Date: 20080226
  Transmission Date: 20110219
  Serious: No
  Sender: FDA-Public Use
  Company Number: US-PFIZER INC-2008009824

PATIENT
  Sex: Female
  Weight: 68.9 kg

DRUGS (16)
  1. CHANTIX [Suspect]
     Indication: SMOKING CESSATION THERAPY
     Dates: start: 20080118
  2. CHANTIX [Suspect]
     Indication: NICOTINE DEPENDENCE
  3. DIAZIDE [Concomitant]
  4. ANTIBIOTICS [Concomitant]
  5. ALL OTHER THERAPEUTIC PRODUCTS [Concomitant]
     Indication: DEPRESSION
  6. PREVACID [Concomitant]
     Indication: GASTROOESOPHAGEAL REFLUX DISEASE
  7. VICODIN [Concomitant]
     Indication: FOOT FRACTURE
  8. VICODIN [Concomitant]
     Indication: BACK DISORDER
  9. VALIUM [Concomitant]
     Indication: ANXIETY
  10. REQUIP [Concomitant]
     Indication: RESTLESS LEGS SYNDROME
  11. SEROQUEL [Concomitant]
     Indication: SLEEP DISORDER
  12. VITAMINS [Concomitant]
  13. DYAZIDE [Concomitant]
     Indication: HYPERTENSION
  14. ESTRADIOL [Concomitant]
  15. IBUPROFEN [Concomitant]
  16. TRILEPTAL [Concomitant]

REACTIONS (5)
  - CONSTIPATION [None]
  - HEADACHE [None]
  - INTENTIONAL DRUG MISUSE [None]
  - MALAISE [None]
  - MEDICATION ERROR [None]
